FAERS Safety Report 6745727-1 (Version None)
Quarter: 2010Q2

REPORT INFORMATION
  Report Type: 
  Country: None (occurrence: None)
  Receive Date: 20100528
  Receipt Date: 20100517
  Transmission Date: 20101027
  Serious: Yes (Other)
  Sender: FDA-Public Use
  Company Number: CA-NAPPMUNDI-CAN-2010-0001368

PATIENT
  Age: 19 Year
  Sex: Male

DRUGS (2)
  1. OXYCONTIN [Suspect]
     Indication: DRUG USE FOR UNKNOWN INDICATION
     Route: 045
  2. COCAINE                            /00157602/ [Suspect]
     Indication: DRUG USE FOR UNKNOWN INDICATION
     Route: 045

REACTIONS (13)
  - ABNORMAL BEHAVIOUR [None]
  - ANGER [None]
  - CONVERSION DISORDER [None]
  - DRUG DEPENDENCE [None]
  - DRUG DIVERSION [None]
  - DRUG WITHDRAWAL SYNDROME [None]
  - EUPHORIC MOOD [None]
  - INSOMNIA [None]
  - MALAISE [None]
  - MOOD SWINGS [None]
  - NEGLECT OF PERSONAL APPEARANCE [None]
  - SOCIAL AVOIDANT BEHAVIOUR [None]
  - SUBSTANCE ABUSE [None]
